FAERS Safety Report 22220239 (Version 1)
Quarter: 2023Q2

REPORT INFORMATION
  Report Type: Spontaneous
  Country: US (occurrence: US)
  Receive Date: 20230417
  Receipt Date: 20230417
  Transmission Date: 20230722
  Serious: No
  Sender: FDA-Public Use
  Company Number: US-BAUSCHBL-2023BNL003107

PATIENT
  Age: 85 Year
  Sex: Female

DRUGS (1)
  1. BRIMONIDINE TARTRATE [Suspect]
     Active Substance: BRIMONIDINE TARTRATE
     Indication: Glaucoma
     Route: 047
     Dates: start: 20230407, end: 20230409

REACTIONS (7)
  - Somnolence [Unknown]
  - Headache [Unknown]
  - Instillation site foreign body sensation [Not Recovered/Not Resolved]
  - Dry mouth [Unknown]
  - Instillation site erythema [Unknown]
  - Instillation site pain [Unknown]
  - Inappropriate schedule of product administration [Unknown]

NARRATIVE: CASE EVENT DATE: 20230407
